FAERS Safety Report 21473551 (Version 1)
Quarter: 2022Q4

REPORT INFORMATION
  Report Type: Spontaneous
  Country: CA (occurrence: CA)
  Receive Date: 20221018
  Receipt Date: 20221018
  Transmission Date: 20230112
  Serious: Yes (Death)
  Sender: FDA-Public Use
  Company Number: CA-PFIZER INC-PV202200042478

PATIENT
  Age: 46 Year
  Sex: Male

DRUGS (3)
  1. ENCORAFENIB [Suspect]
     Active Substance: ENCORAFENIB
     Indication: Thyroid cancer metastatic
     Dosage: 450 MG, DAILY
  2. ENCORAFENIB [Suspect]
     Active Substance: ENCORAFENIB
     Dosage: 45 MG, 2X/DAY
     Route: 048
  3. BINIMETINIB [Suspect]
     Active Substance: BINIMETINIB
     Indication: Thyroid cancer metastatic

REACTIONS (2)
  - Death [Fatal]
  - Off label use [Unknown]
